FAERS Safety Report 20736949 (Version 4)
Quarter: 2022Q3

REPORT INFORMATION
  Report Type: Spontaneous
  Country: US (occurrence: US)
  Receive Date: 20220421
  Receipt Date: 20220811
  Transmission Date: 20221027
  Serious: No
  Sender: FDA-Public Use
  Company Number: US-BRISTOL-MYERS SQUIBB COMPANY-2022-025225

PATIENT
  Age: 71 Year
  Sex: Female

DRUGS (1)
  1. REVLIMID [Suspect]
     Active Substance: LENALIDOMIDE
     Indication: Product used for unknown indication
     Route: 048
     Dates: start: 202203

REACTIONS (9)
  - Constipation [Unknown]
  - Cough [Unknown]
  - Palpitations [Unknown]
  - Fatigue [Unknown]
  - Hypersensitivity [Unknown]
  - Nasal congestion [Unknown]
  - Sinusitis [Unknown]
  - Secretion discharge [Unknown]
  - Infection [Unknown]

NARRATIVE: CASE EVENT DATE: 20220325
